FAERS Safety Report 24040383 (Version 1)
Quarter: 2024Q3

REPORT INFORMATION
  Report Type: Report from Study
  Country: CN (occurrence: CN)
  Receive Date: 20240702
  Receipt Date: 20240702
  Transmission Date: 20241016
  Serious: Yes (Hospitalization, Other)
  Sender: BAXTER
  Company Number: CN-BAXTER-2024BAX019867

PATIENT
  Age: 57 Year
  Sex: Male
  Weight: 42 kg

DRUGS (16)
  1. CYCLOPHOSPHAMIDE [Suspect]
     Active Substance: CYCLOPHOSPHAMIDE
     Indication: Diffuse large B-cell lymphoma stage IV
     Dosage: 750 MG, EVERY 3 WEEKS
     Route: 042
     Dates: start: 20240430
  2. DOXORUBICIN [Suspect]
     Active Substance: DOXORUBICIN
     Indication: Diffuse large B-cell lymphoma stage IV
     Dosage: 50 MG, EVERY 3 WEEKS
     Route: 042
     Dates: start: 20240430
  3. EPCORITAMAB [Suspect]
     Active Substance: EPCORITAMAB
     Indication: Diffuse large B-cell lymphoma stage IV
     Dosage: 0.16 MG PRIMING DOSE; C1, D1, TOTAL
     Route: 042
     Dates: start: 20240430, end: 20240430
  4. EPCORITAMAB [Suspect]
     Active Substance: EPCORITAMAB
     Dosage: 0.16 MG RE-PRIMING DOSE; C1, D1, TOTAL
     Route: 042
     Dates: start: 20240513, end: 20240513
  5. EPCORITAMAB [Suspect]
     Active Substance: EPCORITAMAB
     Dosage: 0.8 MG, INTERMEDIATE DOSE; C1, D8, TOTAL
     Route: 042
     Dates: start: 20240521, end: 20240521
  6. EPCORITAMAB [Suspect]
     Active Substance: EPCORITAMAB
     Dosage: 48 MG FULL DOSE; C1, D15, TOTAL, ONGOING
     Route: 042
     Dates: start: 20240603
  7. RITUXIMAB [Suspect]
     Active Substance: RITUXIMAB
     Indication: Diffuse large B-cell lymphoma stage IV
     Dosage: 500 MG, EVERY 3 WEEKS, ONGOING
     Route: 042
     Dates: start: 20240430
  8. VINCRISTINE [Suspect]
     Active Substance: VINCRISTINE
     Indication: Diffuse large B-cell lymphoma stage IV
     Dosage: 1.87 MG, EVERY 3 WEEKS, ONGOING
     Route: 042
     Dates: start: 20240430
  9. PREDNISONE [Suspect]
     Active Substance: PREDNISONE
     Indication: Diffuse large B-cell lymphoma stage IV
     Dosage: 100 MG C1-6, DAY 1-5, EVERY 1 DAYS, ONGOING
     Route: 048
     Dates: start: 20240430
  10. SULFAMETHOXAZOLE [Concomitant]
     Active Substance: SULFAMETHOXAZOLE
     Indication: Respiratory disorder prophylaxis
     Dosage: 0.96 G, EVERY 1 DAYS
     Route: 065
     Dates: start: 20240430
  11. ENTECAVIR [Concomitant]
     Active Substance: ENTECAVIR
     Indication: Antiviral prophylaxis
     Dosage: 0.5 MG, EVERY 2 DAYS
     Route: 065
     Dates: start: 20240422
  12. GLICLAZIDE [Concomitant]
     Active Substance: GLICLAZIDE
     Indication: Type 2 diabetes mellitus
     Dosage: 80 MG, EVERY 1 DAYS, START DATE: 2004
     Route: 065
  13. METFORMIN [Concomitant]
     Active Substance: METFORMIN HYDROCHLORIDE
     Indication: Type 2 diabetes mellitus
     Dosage: 0.75 G, 2/DAYS, START DATE: 2004
     Route: 065
  14. PROMETHAZINE [Concomitant]
     Active Substance: PROMETHAZINE HYDROCHLORIDE
     Indication: Prophylaxis
     Dosage: 25 MG, TOTAL
     Route: 065
     Dates: start: 20240603, end: 20240603
  15. IBUPROFEN [Concomitant]
     Active Substance: IBUPROFEN
     Indication: Prophylaxis
     Dosage: 0.3 G, TOTAL
     Route: 065
     Dates: start: 20240603, end: 20240603
  16. DEXAMETHASONE [Concomitant]
     Active Substance: DEXAMETHASONE
     Indication: Prophylaxis
     Dosage: 15 MG, TOTAL
     Route: 065
     Dates: start: 20240603, end: 20240603

REACTIONS (1)
  - Cytokine release syndrome [Recovered/Resolved]

NARRATIVE: CASE EVENT DATE: 20240604
